FAERS Safety Report 5423221-8 (Version None)
Quarter: 2007Q3

REPORT INFORMATION
  Report Type: 
  Country: None (occurrence: None)
  Receive Date: 20070730
  Receipt Date: 20070202
  Transmission Date: 20080115
  Serious: Yes (Other)
  Sender: FDA-Public Use
  Company Number: 200710130BWH

PATIENT
  Age: 31 Year
  Sex: Male
  Weight: 113.3993 kg

DRUGS (5)
  1. AVELOX [Suspect]
     Indication: BRONCHITIS
     Dosage: ONCE,ORAL
     Route: 048
     Dates: start: 20070105, end: 20070106
  2. AVELOX [Suspect]
     Indication: PNEUMONIA
     Dosage: ONCE,ORAL
     Route: 048
     Dates: start: 20070105, end: 20070106
  3. PERCOCET [Concomitant]
  4. ZANAFLEX [Concomitant]
  5. AMBIEN [Concomitant]

REACTIONS (1)
  - CONVULSION [None]
